FAERS Safety Report 22615961 (Version 1)
Quarter: 2023Q2

REPORT INFORMATION
  Report Type: Spontaneous
  Country: US (occurrence: US)
  Receive Date: 20230619
  Receipt Date: 20230619
  Transmission Date: 20230722
  Serious: Yes (Hospitalization, Other)
  Sender: FDA-Public Use
  Company Number: US-LUPIN PHARMACEUTICALS INC.-2023-04741

PATIENT
  Age: 69 Year
  Sex: Male

DRUGS (3)
  1. CEFADROXIL [Suspect]
     Active Substance: CEFADROXIL
     Indication: Antibiotic prophylaxis
     Dosage: 500 MILLIGRAM, BID, FOR 7 DAYS
     Route: 048
  2. CEFAZOLIN [Concomitant]
     Active Substance: CEFAZOLIN
     Indication: Antibiotic prophylaxis
     Dosage: 2 GRAM, SINGLE
     Route: 065
  3. CEFAZOLIN [Concomitant]
     Active Substance: CEFAZOLIN
     Dosage: 2 GRAM, POSTOPERATIVELY
     Route: 065

REACTIONS (4)
  - Clostridium difficile colitis [Unknown]
  - Device related infection [Unknown]
  - Escherichia infection [Unknown]
  - Bacteroides infection [Unknown]
